FAERS Safety Report 21477012 (Version 1)
Quarter: 2022Q4

REPORT INFORMATION
  Report Type: Spontaneous
  Country: US (occurrence: None)
  Receive Date: 20221018
  Receipt Date: 20221018
  Transmission Date: 20230113
  Serious: Yes (Hospitalization)
  Sender: FDA-Public Use
  Company Number: None

PATIENT
  Age: 72 Year
  Sex: Male
  Weight: 74 kg

DRUGS (1)
  1. MOLNUPIRAVIR [Suspect]
     Active Substance: MOLNUPIRAVIR
     Indication: COVID-19
     Dates: start: 20220524, end: 20220528

REACTIONS (5)
  - Dyspnoea [None]
  - Cough [None]
  - Fatigue [None]
  - Diarrhoea [None]
  - Respiratory depression [None]

NARRATIVE: CASE EVENT DATE: 20220531
